FAERS Safety Report 19502836 (Version 2)
Quarter: 2021Q3

REPORT INFORMATION
  Report Type: Spontaneous
  Country: US (occurrence: US)
  Receive Date: 20210707
  Receipt Date: 20210720
  Transmission Date: 20211014
  Serious: Yes (Hospitalization, Other)
  Sender: FDA-Public Use
  Company Number: US-BIOMARINAP-US-2021-137352

PATIENT
  Age: 18 Year
  Sex: Male
  Weight: 33 kg

DRUGS (2)
  1. NAGLAZYME [Suspect]
     Active Substance: GALSULFASE
     Indication: MUCOPOLYSACCHARIDOSIS VI
     Dosage: UNK UNK, QW
     Route: 042
     Dates: start: 20170914
  2. NAGLAZYME [Suspect]
     Active Substance: GALSULFASE
     Dosage: 35 MILLIGRAM, QW
     Route: 042
     Dates: start: 201901

REACTIONS (2)
  - Mastoidectomy [Unknown]
  - Intensive care unit delirium [Unknown]

NARRATIVE: CASE EVENT DATE: 20210617
